FAERS Safety Report 4707867-8 (Version None)
Quarter: 2005Q3

REPORT INFORMATION
  Report Type: 
  Country: None (occurrence: None)
  Receive Date: 20050705
  Receipt Date: 20050705
  Transmission Date: 20060218
  Serious: No
  Sender: FDA-Public Use
  Company Number: None

PATIENT
  Age: 17 Year

DRUGS (2)
  1. MAGNESIUM SULFATE [Suspect]
  2. AMPICILLIN [Concomitant]

REACTIONS (7)
  - DYSPNOEA [None]
  - HYPOVENTILATION [None]
  - MENTAL STATUS CHANGES [None]
  - MUSCLE RIGIDITY [None]
  - OXYGEN SATURATION DECREASED [None]
  - UNRESPONSIVE TO PAIN STIMULI [None]
  - VISION BLURRED [None]
